FAERS Safety Report 9473297 (Version 1)
Quarter: 2013Q3

REPORT INFORMATION
  Report Type: Spontaneous
  Country: US (occurrence: US)
  Receive Date: 20130823
  Receipt Date: 20130823
  Transmission Date: 20140515
  Serious: No
  Sender: FDA-Public Use
  Company Number: US-BRISTOL-MYERS SQUIBB COMPANY-18857995

PATIENT
  Age: 61 Year
  Sex: Male

DRUGS (11)
  1. SPRYCEL [Suspect]
     Route: 048
  2. AMBIEN [Concomitant]
  3. EXFORGE [Concomitant]
  4. PLAQUENIL [Concomitant]
  5. PLAVIX [Concomitant]
  6. PROTONIX [Concomitant]
  7. PULMICORT [Concomitant]
  8. SIMVASTATIN [Concomitant]
  9. SYNTHROID [Concomitant]
  10. TOPROL XL [Concomitant]
  11. VIAGRA [Concomitant]

REACTIONS (1)
  - Nausea [Unknown]
